FAERS Safety Report 5214098-4 (Version None)
Quarter: 2007Q1

REPORT INFORMATION
  Report Type: 
  Country: None (occurrence: None)
  Receive Date: 20070122
  Receipt Date: 20070110
  Transmission Date: 20070707
  Serious: Yes (Other)
  Sender: FDA-Public Use
  Company Number: GBWYE099110JAN07

PATIENT
  Age: 39 Year
  Sex: Male

DRUGS (9)
  1. ENBREL [Suspect]
     Indication: DRUG USE FOR UNKNOWN INDICATION
     Dosage: 50MG FREQUENCY UNKNOWN
     Route: 058
     Dates: start: 20060707, end: 20060724
  2. LEFLUNOMIDE [Suspect]
     Route: 048
     Dates: end: 20060707
  3. CODEINE PHOSPHATE [Concomitant]
     Route: 048
  4. ETORICOXIB [Concomitant]
     Route: 048
  5. RISEDRONATE SODIUM [Concomitant]
     Dosage: 35MG FREQUENCY UNKNOWN
     Route: 065
  6. METHOTREXATE [Concomitant]
     Dosage: 20MG FREQUENCY UNKNOWN
     Route: 048
  7. PREDNISOLONE [Concomitant]
     Route: 048
  8. CALCICHEW [Concomitant]
     Route: 048
  9. FOLIC ACID [Concomitant]
     Dosage: 10MG FREQUENCY UNKNOWN
     Route: 048

REACTIONS (2)
  - BLISTER [None]
  - SCAB [None]
